FAERS Safety Report 16192014 (Version 1)
Quarter: 2019Q2

REPORT INFORMATION
  Report Type: Spontaneous
  Country: US (occurrence: US)
  Receive Date: 20190412
  Receipt Date: 20190412
  Transmission Date: 20190711
  Serious: Yes (Other)
  Sender: FDA-Public Use
  Company Number: US-PFIZER INC-2019145913

PATIENT

DRUGS (1)
  1. ROBITUSSIN MAXIMUM STRENGTH COUGH [Suspect]
     Active Substance: DEXTROMETHORPHAN HYDROBROMIDE
     Dosage: UNK

REACTIONS (2)
  - Drug abuse [Unknown]
  - Euphoric mood [Unknown]
